FAERS Safety Report 6822753-5 (Version None)
Quarter: 2010Q3

REPORT INFORMATION
  Report Type: 
  Country: None (occurrence: None)
  Receive Date: 20100708
  Receipt Date: 20100629
  Transmission Date: 20110219
  Serious: Yes (Death, Hospitalization)
  Sender: FDA-Public Use
  Company Number: DE-ROCHE-670828

PATIENT
  Sex: Female
  Weight: 68 kg

DRUGS (5)
  1. CAPECITABINE [Suspect]
     Indication: BREAST CANCER
     Dosage: FREQUENCY: TWICE DAILY FROM DAYS 1-14 IN 3 WEEKS CYCLE.DOSE,FREQUENCY, ROUTE: ACCORDING TO PROTOCOL.
     Route: 048
     Dates: start: 20091006
  2. BEVACIZUMAB [Suspect]
     Indication: BREAST CANCER
     Dosage: DATE OF LAST DOSE PRIOR TO SAE: 17 NOVEMBER 2009.  DOSE, FREQUENCY, ROUTE: ACCORDING TO PROTOCOL.
     Route: 042
     Dates: start: 20091006
  3. BONDRONAT [Concomitant]
     Dosage: DOSE: 6 MG AT DAY 1 OF EVERY CYCLE.
     Dates: start: 20091006
  4. DICLOFENAC SODIUM [Concomitant]
     Dosage: TDD: IF REQUIRED.
     Dates: start: 20090727
  5. COMBAREN [Concomitant]
     Dosage: DRUG NAME: COMBAREN 50MG/ 50MG
     Dates: start: 20091111

REACTIONS (1)
  - PANCYTOPENIA [None]
